FAERS Safety Report 6927514-4 (Version None)
Quarter: 2010Q3

REPORT INFORMATION
  Report Type: 
  Country: None (occurrence: None)
  Receive Date: 20100817
  Receipt Date: 20100806
  Transmission Date: 20110219
  Serious: Yes (Other)
  Sender: FDA-Public Use
  Company Number: FR-SANOFI-AVENTIS-2010SA046492

PATIENT
  Age: 73 Year
  Sex: Female

DRUGS (3)
  1. STILNOX [Suspect]
     Indication: INSOMNIA
     Route: 048
     Dates: start: 20100215, end: 20100224
  2. DAFALGAN CODEINE [Suspect]
     Dosage: 1 TO 2 TABLETS DAILY TO BE RENEWED IF NEED
     Route: 048
     Dates: start: 20100215, end: 20100224
  3. TETRAZEPAM [Suspect]
     Route: 048
     Dates: start: 20100215, end: 20100222

REACTIONS (1)
  - CYTOLYTIC HEPATITIS [None]
